FAERS Safety Report 15241578 (Version 2)
Quarter: 2018Q3

REPORT INFORMATION
  Report Type: Spontaneous
  Country: DE (occurrence: DE)
  Receive Date: 20180805
  Receipt Date: 20180814
  Transmission Date: 20181010
  Serious: Yes (Congenital Anomaly, Other)
  Sender: FDA-Public Use
  Company Number: PHHY2018DE059947

PATIENT
  Age: 39 Year
  Sex: Female
  Weight: 90 kg

DRUGS (8)
  1. SERTRALINE [Suspect]
     Active Substance: SERTRALINE HYDROCHLORIDE
     Indication: EXPOSURE DURING PREGNANCY
     Dosage: MATERNAL DOSE: 150 MG/DL, UNK
     Route: 064
  2. SERTRALINE [Suspect]
     Active Substance: SERTRALINE HYDROCHLORIDE
     Dosage: 150 [MG/D ]/ DOSAGE REDUCTION TO 100MG/D, UNKNOWN WHEN
     Route: 048
  3. PROMETHAZINE [Suspect]
     Active Substance: PROMETHAZINE\PROMETHAZINE HYDROCHLORIDE
     Indication: EXPOSURE DURING PREGNANCY
     Dosage: MATERNAL DOSE: 25 MG
     Route: 064
  4. QUETIAPINE. [Suspect]
     Active Substance: QUETIAPINE
     Dosage: 150 MG PER DAY
     Route: 048
  5. QUETIAPINE. [Suspect]
     Active Substance: QUETIAPINE
     Indication: SCHIZOAFFECTIVE DISORDER
     Dosage: MATERNAL DOSE: 150 MG/D
     Route: 064
  6. METHYLDOPA. [Suspect]
     Active Substance: METHYLDOPA
     Indication: HYPERTENSION
     Dosage: UNK
     Route: 064
  7. SERTRALINE [Suspect]
     Active Substance: SERTRALINE HYDROCHLORIDE
     Dosage: MATERNAL DOSE: 100 MG/DL, UNK
     Route: 064
  8. METHYLDOPA. [Suspect]
     Active Substance: METHYLDOPA
     Dosage: UNKNOWN
     Route: 065

REACTIONS (6)
  - Laryngitis [Unknown]
  - Small for dates baby [Unknown]
  - Pre-eclampsia [Unknown]
  - Ureteric stenosis [Not Recovered/Not Resolved]
  - Ovarian cyst [Unknown]
  - Labelled drug-drug interaction medication error [Unknown]

NARRATIVE: CASE EVENT DATE: 20170724
